FAERS Safety Report 4867039-3 (Version None)
Quarter: 2005Q4

REPORT INFORMATION
  Report Type: 
  Country: None (occurrence: None)
  Receive Date: 20051222
  Receipt Date: 20051212
  Transmission Date: 20060501
  Serious: Yes (Death, Life-Threatening)
  Sender: FDA-Public Use
  Company Number: US016426

PATIENT
  Age: 65 Year

DRUGS (3)
  1. TRISENOX [Suspect]
     Indication: MULTIPLE MYELOMA
     Dates: start: 20050501
  2. DEXAMETHASONE TAB [Suspect]
     Indication: MULTIPLE MYELOMA
  3. ABSCORBIC ACID [Suspect]

REACTIONS (3)
  - MULTI-ORGAN FAILURE [None]
  - PNEUMONIA [None]
  - SEPSIS [None]
